FAERS Safety Report 4561453-1 (Version None)
Quarter: 2005Q1

REPORT INFORMATION
  Report Type: 
  Country: None (occurrence: None)
  Receive Date: 20050121
  Receipt Date: 20050103
  Transmission Date: 20050727
  Serious: Yes (Hospitalization, Other)
  Sender: FDA-Public Use
  Company Number: USA041183293

PATIENT
  Age: 80 Year
  Sex: Female
  Weight: 45 kg

DRUGS (8)
  1. FORTEO [Suspect]
     Indication: OSTEOPOROSIS
     Dosage: 20 UG DAY
     Dates: start: 20030101
  2. METOPROLOL SUCCINATE [Concomitant]
  3. DILANTIN [Concomitant]
  4. PROTONIX [Concomitant]
  5. KLOTRIX [Concomitant]
  6. SEROQUEL [Concomitant]
  7. KEPPRA [Concomitant]
  8. ROCEPHIN [Concomitant]

REACTIONS (10)
  - ARTHRALGIA [None]
  - ARTHROPATHY [None]
  - CEREBROVASCULAR ACCIDENT [None]
  - COORDINATION ABNORMAL [None]
  - JOINT HYPEREXTENSION [None]
  - JOINT RANGE OF MOTION DECREASED [None]
  - JOINT SWELLING [None]
  - PNEUMONIA [None]
  - SIMPLE PARTIAL SEIZURES [None]
  - UROSEPSIS [None]
